FAERS Safety Report 7440544-1 (Version None)
Quarter: 2011Q2

REPORT INFORMATION
  Report Type: 
  Country: None (occurrence: None)
  Receive Date: 20110427
  Receipt Date: 20110422
  Transmission Date: 20111010
  Serious: Yes (Hospitalization)
  Sender: FDA-Public Use
  Company Number: A0907055A

PATIENT
  Age: 73 Year
  Sex: Female
  Weight: 69.5 kg

DRUGS (7)
  1. TEVETEN [Concomitant]
  2. CRESTOR [Concomitant]
  3. METFORMIN [Concomitant]
  4. AVANDIA [Suspect]
     Indication: TYPE 2 DIABETES MELLITUS
     Dosage: 8MG PER DAY
     Route: 048
     Dates: start: 20030929, end: 20070612
  5. ATENOLOL [Concomitant]
  6. GLIPIZIDE [Concomitant]
  7. AVANDAMET [Suspect]
     Indication: DIABETES MELLITUS
     Route: 048
     Dates: start: 20030929, end: 20050101

REACTIONS (4)
  - MYOCARDIAL INFARCTION [None]
  - CORONARY ARTERY DISEASE [None]
  - ARTERIOSCLEROSIS [None]
  - PALPITATIONS [None]
